FAERS Safety Report 8150599-7 (Version None)
Quarter: 2012Q1

REPORT INFORMATION
  Report Type: 
  Country: None (occurrence: None)
  Receive Date: 20120220
  Receipt Date: 20120206
  Transmission Date: 20120608
  Serious: Yes (Other)
  Sender: FDA-Public Use
  Company Number: PHEH2012US003112

PATIENT
  Sex: Male

DRUGS (4)
  1. CARBAMAZEPINE [Suspect]
     Indication: TRIGEMINAL NEURALGIA
     Dosage: 200 MG, (6 PER DAY)
  2. ASPIRIN [Concomitant]
     Dosage: 81 MG, (2 PER DAY)
  3. TEGRETOL [Suspect]
     Indication: TRIGEMINAL NEURALGIA
     Dosage: 200 MG, (3 PER DAY)
  4. PRAVASTATIN [Concomitant]
     Dosage: 80 MG, UNK

REACTIONS (5)
  - VENOUS OCCLUSION [None]
  - FACIAL NERVE DISORDER [None]
  - ABDOMINAL DISCOMFORT [None]
  - PAIN IN EXTREMITY [None]
  - VOMITING [None]
